APPROVED DRUG PRODUCT: FOLIC ACID
Active Ingredient: FOLIC ACID
Strength: 5MG/ML
Dosage Form/Route: INJECTABLE;INJECTION
Application: A089202 | Product #001 | TE Code: AP
Applicant: FRESENIUS KABI USA LLC
Approved: Feb 18, 1986 | RLD: No | RS: Yes | Type: RX